FAERS Safety Report 14431687 (Version 1)
Quarter: 2018Q1

REPORT INFORMATION
  Report Type: Other
  Country: US (occurrence: US)
  Receive Date: 20180124
  Receipt Date: 20180124
  Transmission Date: 20180509
  Serious: Yes (Life-Threatening, Hospitalization, Other)
  Sender: FDA-Public Use
  Company Number: US-ALSI-201800052

PATIENT
  Age: 5 Year
  Sex: Male

DRUGS (2)
  1. SEVOFLURANE. [Suspect]
     Active Substance: SEVOFLURANE
     Route: 055
  2. NITROUS OXIDE. [Suspect]
     Active Substance: NITROUS OXIDE
     Indication: INDUCTION OF ANAESTHESIA
     Route: 055

REACTIONS (9)
  - Hyperthermia malignant [Recovering/Resolving]
  - Liver function test abnormal [Recovered/Resolved]
  - Cerebral infarction [Recovering/Resolving]
  - Shock [Recovered/Resolved]
  - Pulmonary haemorrhage [Recovered/Resolved]
  - Renal failure [Recovered/Resolved]
  - Compartment syndrome [Unknown]
  - Disseminated intravascular coagulation [Unknown]
  - Respiratory failure [Recovered/Resolved]
